FAERS Safety Report 4500951-3 (Version None)
Quarter: 2004Q4

REPORT INFORMATION
  Report Type: 
  Country: None (occurrence: None)
  Receive Date: 20041110
  Receipt Date: 20041014
  Transmission Date: 20050328
  Serious: Yes (Hospitalization, Disabling, Other)
  Sender: FDA-Public Use
  Company Number: USA031049961

PATIENT
  Age: 41 Year
  Sex: Male
  Weight: 74 kg

DRUGS (8)
  1. HUMULIN L [Suspect]
     Indication: DIABETES MELLITUS
     Dosage: 10 U/2 DAY
     Dates: start: 19920101
  2. HUMALOG [Suspect]
     Indication: DIABETES MELLITUS
     Dates: start: 19970101, end: 20031001
  3. HUMULIN R [Suspect]
     Indication: DIABETES MELLITUS
     Dates: start: 19920101
  4. HUMULIN U [Suspect]
     Indication: DIABETES MELLITUS
     Dates: start: 19940610
  5. INSULIN-INSULIN-ANIMAL (UNKNOWN FORMULATION)  (INSUL [Suspect]
     Indication: DIABETES MELLITUS
     Dates: start: 19660101, end: 19920101
  6. HUMULIN N [Suspect]
     Indication: DIABETES MELLITUS
     Dates: start: 19920101, end: 19920101
  7. ASPIRIN [Concomitant]
  8. CENTRUM [Concomitant]

REACTIONS (68)
  - ABDOMINAL DISTENSION [None]
  - ABNORMAL BEHAVIOUR [None]
  - AGE INDETERMINATE MYOCARDIAL INFARCTION [None]
  - AGGRESSION [None]
  - AGITATION [None]
  - ANGINA UNSTABLE [None]
  - ANXIETY [None]
  - APHASIA [None]
  - ARTHRALGIA [None]
  - ASTHENIA [None]
  - BIPOLAR DISORDER [None]
  - BLOOD PRESSURE SYSTOLIC INCREASED [None]
  - BUNDLE BRANCH BLOCK RIGHT [None]
  - CARPAL TUNNEL SYNDROME [None]
  - CHEST DISCOMFORT [None]
  - CONVULSION [None]
  - DEPRESSED LEVEL OF CONSCIOUSNESS [None]
  - DEPRESSION [None]
  - DIABETIC RETINOPATHY [None]
  - DIARRHOEA [None]
  - DISORIENTATION [None]
  - DIZZINESS [None]
  - ERECTILE DYSFUNCTION [None]
  - ERYTHEMA [None]
  - EUPHORIC MOOD [None]
  - FATIGUE [None]
  - FEELING COLD [None]
  - GLYCOSYLATED HAEMOGLOBIN INCREASED [None]
  - HYPERGLYCAEMIA [None]
  - HYPERHIDROSIS [None]
  - HYPOGLYCAEMIA [None]
  - HYPOGLYCAEMIA UNAWARENESS [None]
  - HYPOKALAEMIA [None]
  - IMPAIRED DRIVING ABILITY [None]
  - IMPAIRED GASTRIC EMPTYING [None]
  - IMPAIRED WORK ABILITY [None]
  - INCOHERENT [None]
  - INFECTION [None]
  - INSOMNIA [None]
  - IRRITABLE BOWEL SYNDROME [None]
  - JOINT SWELLING [None]
  - LIBIDO DISORDER [None]
  - LIMB INJURY [None]
  - LIPODYSTROPHY ACQUIRED [None]
  - LOW DENSITY LIPOPROTEIN INCREASED [None]
  - MACULAR OEDEMA [None]
  - MEMORY IMPAIRMENT [None]
  - MENTAL DISORDER [None]
  - MIGRAINE WITH AURA [None]
  - MUSCULOSKELETAL DISCOMFORT [None]
  - MYOCARDIAL ISCHAEMIA [None]
  - NAUSEA [None]
  - PARAESTHESIA [None]
  - PERFORMANCE FEAR [None]
  - PHARMACEUTICAL PRODUCT COMPLAINT [None]
  - PHOTOPSIA [None]
  - PROTEINURIA [None]
  - RENAL IMPAIRMENT [None]
  - RETINAL EXUDATES [None]
  - RETINAL VASCULAR DISORDER [None]
  - SCINTILLATING SCOTOMA [None]
  - SKIN REACTION [None]
  - SOMOGYI PHENOMENON [None]
  - STRESS SYMPTOMS [None]
  - SWELLING [None]
  - TREMOR [None]
  - VASODILATATION [None]
  - WEIGHT INCREASED [None]
